FAERS Safety Report 7966917-6 (Version None)
Quarter: 2011Q4

REPORT INFORMATION
  Report Type: 
  Country: None (occurrence: None)
  Receive Date: 20111209
  Receipt Date: 20111205
  Transmission Date: 20120403
  Serious: Yes (Other)
  Sender: FDA-Public Use
  Company Number: CZ-PFIZER INC-2011297238

PATIENT
  Age: 29 Year
  Sex: Male

DRUGS (5)
  1. ANOPYRIN [Concomitant]
  2. PERINDOPRIL [Concomitant]
  3. ISOSORBIDE MONONITRATE [Concomitant]
  4. METOPROLOL TARTRATE [Concomitant]
  5. ATORVASTATIN CALCIUM [Suspect]
     Indication: HYPERCHOLESTEROLAEMIA

REACTIONS (1)
  - DERMATITIS ALLERGIC [None]
